FAERS Safety Report 20737779 (Version 1)
Quarter: 2022Q2

REPORT INFORMATION
  Report Type: Spontaneous
  Country: FR (occurrence: FR)
  Receive Date: 20220422
  Receipt Date: 20220422
  Transmission Date: 20220721
  Serious: Yes (Other)
  Sender: FDA-Public Use
  Company Number: FR-AFSSAPS-MA20221430

PATIENT
  Age: 51 Year
  Sex: Female
  Weight: 58 kg

DRUGS (1)
  1. CITALOPRAM HYDROBROMIDE [Suspect]
     Active Substance: CITALOPRAM HYDROBROMIDE
     Indication: Depression
     Dosage: 1 OU 1/2 COMPRIME PAR JOUR (1 OR 1/2 TABLET PER DAY)
     Route: 048

REACTIONS (1)
  - Condition aggravated [Unknown]
